FAERS Safety Report 8976170 (Version 1)
Quarter: 2012Q4

REPORT INFORMATION
  Report Type: 
  Country: US (occurrence: US)
  Receive Date: 20121219
  Receipt Date: 20121219
  Transmission Date: 20130627
  Serious: No
  Sender: FDA-Public Use
  Company Number: US-AMGEN-USASP2012069457

PATIENT
  Sex: Female

DRUGS (1)
  1. PROLIA [Suspect]
     Indication: PRODUCT USED FOR UNKNOWN INDICATION
     Dosage: UNK
     Dates: start: 201204

REACTIONS (6)
  - Muscular weakness [Unknown]
  - Anaemia [Unknown]
  - Alopecia [Unknown]
  - Nail ridging [Unknown]
  - Madarosis [Unknown]
  - Dysstasia [Unknown]
